FAERS Safety Report 4999421-8 (Version None)
Quarter: 2006Q2

REPORT INFORMATION
  Report Type: 
  Country: None (occurrence: None)
  Receive Date: 20060509
  Receipt Date: 20060509
  Transmission Date: 20061013
  Serious: No
  Sender: FDA-Public Use
  Company Number: None

PATIENT
  Age: 60 Year
  Sex: Female

DRUGS (12)
  1. UNASYN [Suspect]
     Indication: PNEUMONIA ASPIRATION
     Dosage: 1.5 GM IV Q 12 HOURS
     Route: 042
     Dates: start: 20050825, end: 20050830
  2. METOPROLOL TARTRATE [Concomitant]
  3. AMLODIPINE [Concomitant]
  4. EPOGEN [Concomitant]
  5. HEPARIN [Concomitant]
  6. ATORVASTATIN [Concomitant]
  7. FERROUS SULFATE TAB [Concomitant]
  8. NEPHROCAPS [Concomitant]
  9. BACTRIM [Concomitant]
  10. VANCOMYCIN [Concomitant]
  11. INSULIN [Concomitant]
  12. APAP TAB [Concomitant]

REACTIONS (3)
  - BLOOD CREATININE INCREASED [None]
  - CONDITION AGGRAVATED [None]
  - MENTAL STATUS CHANGES [None]
